FAERS Safety Report 5427321-8 (Version None)
Quarter: 2007Q3

REPORT INFORMATION
  Report Type: 
  Country: None (occurrence: None)
  Receive Date: 20070828
  Receipt Date: 20070822
  Transmission Date: 20080115
  Serious: Yes (Other)
  Sender: FDA-Public Use
  Company Number: BE-AMGEN-US239015

PATIENT
  Age: 24 Year
  Sex: Female
  Weight: 115 kg

DRUGS (9)
  1. ENBREL [Suspect]
     Indication: PSORIATIC ARTHROPATHY
     Dosage: NOT PROVIDED
     Route: 058
     Dates: start: 20070101, end: 20070802
  2. XANAX [Suspect]
     Dosage: 1 MG
     Route: 048
     Dates: start: 20020101
  3. DAKAR [Suspect]
     Dosage: 15 MG
     Route: 048
     Dates: start: 20020101, end: 20070802
  4. RANITIDINE [Concomitant]
     Dosage: NOT PROVIDED
     Route: 048
  5. CITALOPRAM [Concomitant]
     Dosage: NOT PROVIDED
     Route: 048
  6. YASMIN [Concomitant]
  7. ELTHYRONE [Concomitant]
     Route: 048
  8. DIHYDERGOT [Concomitant]
  9. BISOPROLOL [Concomitant]

REACTIONS (2)
  - BALLISMUS [None]
  - DYSKINESIA [None]
